FAERS Safety Report 19424000 (Version 2)
Quarter: 2021Q3

REPORT INFORMATION
  Report Type: Report from Study
  Country: US (occurrence: US)
  Receive Date: 20210616
  Receipt Date: 20210728
  Transmission Date: 20211014
  Serious: Yes (Hospitalization, Other)
  Sender: FDA-Public Use
  Company Number: US-PFIZER INC-2021679078

PATIENT
  Age: 70 Year
  Sex: Female
  Weight: 66.9 kg

DRUGS (13)
  1. BRAFTOVI [Suspect]
     Active Substance: ENCORAFENIB
     Dosage: 45 MG, 1X/DAY
     Route: 048
     Dates: start: 20210607, end: 20210607
  2. COREG [Concomitant]
     Active Substance: CARVEDILOL
     Indication: HYPERTENSION
     Dosage: UNK
     Route: 048
  3. BIO?D?MULSION [Concomitant]
     Indication: PHYTOTHERAPY
     Dosage: UNK
     Route: 048
  4. TYLENOL [Concomitant]
     Active Substance: ACETAMINOPHEN
  5. BINIMETINIB [Suspect]
     Active Substance: BINIMETINIB
     Indication: HAIRY CELL LEUKAEMIA
     Dosage: 45 MG, 2X/DAY
     Route: 048
     Dates: start: 20210506, end: 20210509
  6. MAGNESIUM GLYCINATE DIHYDRATE [Concomitant]
     Indication: VITAMIN SUPPLEMENTATION
  7. BRAFTOVI [Suspect]
     Active Substance: ENCORAFENIB
     Indication: HAIRY CELL LEUKAEMIA
     Dosage: 450 MG, 1X/DAY
     Route: 048
     Dates: start: 20210506, end: 20210508
  8. VALTREX [Concomitant]
     Active Substance: VALACYCLOVIR HYDROCHLORIDE
     Indication: ANTIVIRAL PROPHYLAXIS
     Dosage: UNK
     Route: 048
     Dates: start: 202105
  9. MAGNESIUM GLYCINATE DIHYDRATE [Concomitant]
     Indication: PHYTOTHERAPY
     Dosage: UNK
     Route: 048
  10. SYNTHROID [Concomitant]
     Active Substance: LEVOTHYROXINE SODIUM
     Indication: HYPOTHYROIDISM
     Dosage: UNK
     Route: 048
     Dates: start: 20170226
  11. BIO?D?MULSION [Concomitant]
     Indication: VITAMIN SUPPLEMENTATION
  12. FOLIC ACID. [Concomitant]
     Active Substance: FOLIC ACID
     Indication: PHYTOTHERAPY
     Dosage: UNK
     Route: 048
  13. FOLIC ACID. [Concomitant]
     Active Substance: FOLIC ACID
     Indication: VITAMIN SUPPLEMENTATION

REACTIONS (1)
  - Lipase increased [Not Recovered/Not Resolved]

NARRATIVE: CASE EVENT DATE: 20210608
